FAERS Safety Report 10381819 (Version 3)
Quarter: 2015Q3

REPORT INFORMATION
  Report Type: Spontaneous
  Country: GB (occurrence: GB)
  Receive Date: 20140813
  Receipt Date: 20150707
  Transmission Date: 20151125
  Serious: Yes (Other)
  Sender: FDA-Public Use
  Company Number: GB-TEVA-500132ISR

PATIENT
  Age: 52 Year
  Sex: Female
  Weight: 63.5 kg

DRUGS (1)
  1. DOXYCYCLINE. [Suspect]
     Active Substance: DOXYCYCLINE
     Indication: SINUS CONGESTION
     Route: 048
     Dates: start: 20140328

REACTIONS (6)
  - Pain [Recovered/Resolved with Sequelae]
  - Raynaud^s phenomenon [Not Recovered/Not Resolved]
  - Abscess oral [Recovered/Resolved]
  - Anosmia [Recovered/Resolved with Sequelae]
  - Urticaria [Recovered/Resolved]
  - Condition aggravated [Unknown]

NARRATIVE: CASE EVENT DATE: 20140318
